FAERS Safety Report 9833104 (Version 1)
Quarter: 2014Q1

REPORT INFORMATION
  Report Type: Spontaneous
  Country: US (occurrence: US)
  Receive Date: 20140121
  Receipt Date: 20140121
  Transmission Date: 20141002
  Serious: Yes (Death)
  Sender: FDA-Public Use
  Company Number: US-PFIZER INC-2014016724

PATIENT
  Sex: Male

DRUGS (2)
  1. XELJANZ [Suspect]
     Indication: RHEUMATOID ARTHRITIS
     Dosage: TWICE DAILY
  2. METHOTREXATE [Concomitant]
     Dosage: UNK

REACTIONS (1)
  - Myocardial infarction [Fatal]
